FAERS Safety Report 10027599 (Version 1)
Quarter: 2014Q1

REPORT INFORMATION
  Report Type: Spontaneous
  Country: US (occurrence: US)
  Receive Date: 20140321
  Receipt Date: 20140321
  Transmission Date: 20141002
  Serious: Yes (Death)
  Sender: FDA-Public Use
  Company Number: US-PFIZER INC-2014080295

PATIENT
  Age: 56 Year
  Sex: Male

DRUGS (1)
  1. RAPAMUNE [Suspect]
     Indication: PROPHYLAXIS AGAINST TRANSPLANT REJECTION
     Dosage: 2 MG, 1X/DAY, (TWO 1 MG TABLETS DAILY)
     Dates: start: 20131122

REACTIONS (2)
  - Malignant melanoma [Fatal]
  - Off label use [Unknown]
